FAERS Safety Report 4372196-1 (Version None)
Quarter: 2004Q2

REPORT INFORMATION
  Report Type: 
  Country: None (occurrence: None)
  Receive Date: 20040607
  Receipt Date: 20040525
  Transmission Date: 20050107
  Serious: Yes (Other)
  Sender: FDA-Public Use
  Company Number: NL-GLAXOSMITHKLINE-B0334370A

PATIENT
  Sex: Female

DRUGS (1)
  1. FLUTICASONE PROPIONATE [Suspect]
     Indication: BRONCHITIS
     Dates: start: 20040201

REACTIONS (3)
  - HALLUCINATION [None]
  - HEADACHE [None]
  - PALPITATIONS [None]
